FAERS Safety Report 16466232 (Version 2)
Quarter: 2019Q3

REPORT INFORMATION
  Report Type: Spontaneous
  Country: DE (occurrence: DE)
  Receive Date: 20190621
  Receipt Date: 20190719
  Transmission Date: 20191004
  Serious: Yes (Hospitalization, Other)
  Sender: FDA-Public Use
  Company Number: DE-GILEAD-2019-0414233

PATIENT
  Age: 78 Year
  Sex: Male

DRUGS (9)
  1. IBUPROFEN. [Concomitant]
     Active Substance: IBUPROFEN
  2. ZYDELIG [Suspect]
     Active Substance: IDELALISIB
     Dosage: 100 MG
     Route: 065
  3. FUROSEMIDE. [Concomitant]
     Active Substance: FUROSEMIDE
  4. L-THYROXINE [LEVOTHYROXINE] [Concomitant]
     Active Substance: LEVOTHYROXINE
  5. LOSARTAN. [Concomitant]
     Active Substance: LOSARTAN
  6. ZYDELIG [Suspect]
     Active Substance: IDELALISIB
     Dosage: 150 MG
     Route: 048
     Dates: start: 20160106
  7. ZYDELIG [Suspect]
     Active Substance: IDELALISIB
     Indication: B-CELL LYMPHOMA
     Dosage: 150 MG, BID
     Route: 065
     Dates: start: 20141219, end: 20151214
  8. ZYDELIG [Suspect]
     Active Substance: IDELALISIB
     Dosage: 100 MG BID
     Route: 065
     Dates: start: 201602
  9. BISOPROLOL [Concomitant]
     Active Substance: BISOPROLOL

REACTIONS (4)
  - Arthritis infective [Recovered/Resolved]
  - Electrolyte imbalance [Unknown]
  - Dehydration [Unknown]
  - Colitis [Recovered/Resolved]

NARRATIVE: CASE EVENT DATE: 20151214
